FAERS Safety Report 9691258 (Version 2)
Quarter: 2013Q4

REPORT INFORMATION
  Report Type: Spontaneous
  Country: IL (occurrence: IL)
  Receive Date: 20131115
  Receipt Date: 20131115
  Transmission Date: 20140711
  Serious: Yes (Disabling, Other)
  Sender: FDA-Public Use
  Company Number: IL-AMGEN-ISRSP2013064294

PATIENT
  Age: 63 Year
  Sex: Male
  Weight: 78 kg

DRUGS (2)
  1. VECTIBIX [Suspect]
     Indication: COLORECTAL CANCER METASTATIC
     Dosage: 6 MG/KG, UNK
     Route: 065
     Dates: start: 201306, end: 201310
  2. IRINOTECAN HYDROCHLORIDE TRIHYDRATE [Concomitant]
     Indication: COLORECTAL CANCER METASTATIC
     Dosage: UNK

REACTIONS (4)
  - Conjunctivitis [Not Recovered/Not Resolved]
  - Rash [Unknown]
  - Skin toxicity [Not Recovered/Not Resolved]
  - Eye infection [Not Recovered/Not Resolved]
